FAERS Safety Report 6908546-9 (Version None)
Quarter: 2010Q3

REPORT INFORMATION
  Report Type: 
  Country: None (occurrence: None)
  Receive Date: 20100805
  Receipt Date: 20100728
  Transmission Date: 20110219
  Serious: Yes (Other)
  Sender: FDA-Public Use
  Company Number: FR-PFIZER INC-2010094651

PATIENT
  Age: 49 Year
  Sex: Female

DRUGS (1)
  1. TAHOR [Suspect]
     Dosage: 10 MG, 1X/DAY
     Dates: start: 20100727, end: 20100728

REACTIONS (2)
  - EYELID OEDEMA [None]
  - OEDEMA PERIPHERAL [None]
